FAERS Safety Report 13110293 (Version 1)
Quarter: 2017Q1

REPORT INFORMATION
  Report Type: Spontaneous
  Country: US (occurrence: US)
  Receive Date: 20170112
  Receipt Date: 20170112
  Transmission Date: 20170428
  Serious: Yes (Death)
  Sender: FDA-Public Use
  Company Number: US-ROCHE-1366275

PATIENT
  Sex: Male
  Weight: 72.8 kg

DRUGS (6)
  1. DIGOXIN. [Concomitant]
     Active Substance: DIGOXIN
  2. LISINOPRIL. [Concomitant]
     Active Substance: LISINOPRIL
  3. SOTALOL. [Concomitant]
     Active Substance: SOTALOL
  4. ACTIVASE [Suspect]
     Active Substance: ALTEPLASE
     Route: 042
     Dates: start: 20140104, end: 20140104
  5. ASPIRIN. [Concomitant]
     Active Substance: ASPIRIN
  6. ACTIVASE [Suspect]
     Active Substance: ALTEPLASE
     Indication: CEREBROVASCULAR ACCIDENT
     Dosage: IV PUSH
     Route: 042
     Dates: start: 20140104, end: 20140104

REACTIONS (1)
  - Haemorrhage intracranial [Fatal]
